FAERS Safety Report 8268045 (Version 6)
Quarter: 2012Q4

REPORT INFORMATION
  Report Type: 
  Country: US (occurrence: US)
  Receive Date: 20111130
  Receipt Date: 20121112
  Transmission Date: 20130627
  Serious: Yes (Hospitalization, Other)
  Sender: FDA-Public Use
  Company Number: US-BIOGENIDEC-2011BI044274

PATIENT
  Age: 48 Year
  Sex: Female

DRUGS (5)
  1. TYSABRI [Suspect]
     Indication: MULTIPLE SCLEROSIS
     Route: 042
     Dates: start: 20091217, end: 20100812
  2. TYSABRI [Suspect]
     Indication: MULTIPLE SCLEROSIS
     Route: 042
     Dates: start: 20110308, end: 20110804
  3. DDAVP [Concomitant]
  4. BONIVA [Concomitant]
  5. LORAZEPAM [Concomitant]

REACTIONS (4)
  - Extranodal marginal zone B-cell lymphoma (MALT type) [Recovered/Resolved]
  - Gastric ulcer [Recovered/Resolved]
  - Iron deficiency anaemia [Recovered/Resolved]
  - Multiple sclerosis [Not Recovered/Not Resolved]
